FAERS Safety Report 5400717-6 (Version None)
Quarter: 2007Q3

REPORT INFORMATION
  Report Type: 
  Country: None (occurrence: None)
  Receive Date: 20070730
  Receipt Date: 20070717
  Transmission Date: 20080115
  Serious: Yes (Other)
  Sender: FDA-Public Use
  Company Number: US-ELI_LILLY_AND_COMPANY-US200706006003

PATIENT
  Age: 82 Year
  Sex: Female
  Weight: 73.469 kg

DRUGS (6)
  1. CYMBALTA [Suspect]
     Indication: DIABETIC NEUROPATHY
     Dosage: 30 MG, UNKNOWN
     Route: 048
     Dates: start: 20070616
  2. TOPROL-XL [Concomitant]
     Indication: BLOOD PRESSURE
     Dosage: 25 MG, UNK
     Dates: start: 20070322, end: 20070617
  3. LISINOPRIL [Concomitant]
     Indication: BLOOD PRESSURE
     Dosage: 10 MG, UNK
  4. DIURETICS [Concomitant]
  5. BUSPAR [Concomitant]
     Dosage: 10 MG, UNK
  6. LORTAB [Concomitant]
     Indication: PAIN
     Dosage: 5 MG, UNK

REACTIONS (4)
  - FALL [None]
  - FRACTURE [None]
  - HYPOTENSION [None]
  - PAIN [None]
